FAERS Safety Report 7817376-5 (Version None)
Quarter: 2011Q4

REPORT INFORMATION
  Report Type: 
  Country: None (occurrence: None)
  Receive Date: 20111017
  Receipt Date: 20111007
  Transmission Date: 20120403
  Serious: Yes (Other)
  Sender: FDA-Public Use
  Company Number: GB-ABBOTT-11P-167-0862015-00

PATIENT
  Age: 65 Year
  Sex: Female

DRUGS (3)
  1. DOXYCYCLINE [Suspect]
     Indication: EMPYEMA
     Route: 048
  2. AMOXICILLIN AND CLAVULANATE POTASSIUM [Suspect]
     Indication: PNEUMONIA
     Route: 042
  3. CLARITHROMYCIN [Suspect]
     Indication: PNEUMONIA

REACTIONS (4)
  - DRUG INEFFECTIVE [None]
  - INFECTION [None]
  - EMPYEMA [None]
  - DISEASE RECURRENCE [None]
